FAERS Safety Report 6984390-1 (Version None)
Quarter: 2010Q3

REPORT INFORMATION
  Report Type: 
  Country: None (occurrence: None)
  Receive Date: 20100915
  Receipt Date: 20100901
  Transmission Date: 20110219
  Serious: Yes (Hospitalization, Other)
  Sender: FDA-Public Use
  Company Number: US-ELI_LILLY_AND_COMPANY-US201002005323

PATIENT
  Sex: Female

DRUGS (12)
  1. FORTEO [Suspect]
     Indication: OSTEOPOROSIS
     Dosage: 20 UG, DAILY (1/D)
     Route: 065
  2. CYMBALTA [Suspect]
     Indication: DEPRESSION
     Dosage: 30 MG, DAILY (1/D)
     Route: 065
  3. CALCIUM CITRATE [Concomitant]
     Dosage: 1000 MG, 3/D
     Route: 065
  4. VITAMIN D [Concomitant]
     Dosage: 1500 IU, 3/D
     Route: 065
  5. VITAMIN D [Concomitant]
     Dosage: 50000 IU, 2/W
     Route: 065
  6. LIPITOR [Concomitant]
     Dosage: 40 MG, UNKNOWN
     Route: 065
  7. COZAAR [Concomitant]
     Dosage: 2.5 MG, UNKNOWN
     Route: 065
  8. SYNTHROID [Concomitant]
     Dosage: 75 MG, UNKNOWN
     Route: 065
  9. INSULIN [Concomitant]
     Dosage: UNK, UNKNOWN
  10. HYDROCHLOROTHIAZIDE [Concomitant]
     Dosage: 25 MG, UNKNOWN
     Route: 065
  11. NEXIUM [Concomitant]
     Dosage: 40 MG, UNKNOWN
     Route: 065
  12. PROCRIT [Concomitant]
     Dosage: 20000 IU, EVERY OTHER WEEK
     Route: 065

REACTIONS (8)
  - BONE DISORDER [None]
  - DRY MOUTH [None]
  - FALL [None]
  - FEMUR FRACTURE [None]
  - FOOT FRACTURE [None]
  - FRACTURE [None]
  - KNEE ARTHROPLASTY [None]
  - NAUSEA [None]
